FAERS Safety Report 9587886 (Version 2)
Quarter: 2013Q4

REPORT INFORMATION
  Report Type: Spontaneous
  Country: JP (occurrence: JP)
  Receive Date: 20131003
  Receipt Date: 20131003
  Transmission Date: 20140711
  Serious: Yes (Other)
  Sender: FDA-Public Use
  Company Number: JP-SUCAMPO PHARMA AMERICAS, INC-SPI201300244

PATIENT
  Age: 69 Year
  Sex: Female
  Weight: 42 kg

DRUGS (9)
  1. AMITIZA [Suspect]
     Indication: CONSTIPATION
     Dosage: UNK
     Route: 048
     Dates: start: 20130321, end: 20130403
  2. WARFARIN [Concomitant]
     Indication: THROMBOSIS PROPHYLAXIS
     Dosage: 1.5
  3. TYRADIN [Concomitant]
     Indication: HYPOTHYROIDISM
  4. LASIX [Concomitant]
     Indication: CARDIAC FAILURE CHRONIC
     Dosage: 20
  5. ALDACTONE [Concomitant]
     Indication: CARDIAC FAILURE CHRONIC
     Dosage: 25
  6. HALFDIGOXIN [Concomitant]
     Indication: CARDIAC FAILURE CHRONIC
     Dosage: 0.125
  7. GASTER [Concomitant]
     Indication: GASTRITIS
     Dosage: 20
  8. MARZULENE [Concomitant]
     Indication: GASTRITIS
     Dosage: 0.5
  9. MAINTATE [Concomitant]
     Indication: CARDIAC FAILURE CHRONIC
     Dosage: 2.5

REACTIONS (3)
  - Cardiac failure [Recovered/Resolved]
  - Oedema [Recovered/Resolved]
  - Weight increased [Recovered/Resolved]
